FAERS Safety Report 16483661 (Version 1)
Quarter: 2019Q2

REPORT INFORMATION
  Report Type: Spontaneous
  Country: US (occurrence: US)
  Receive Date: 20190516
  Receipt Date: 20190516
  Transmission Date: 20190711
  Serious: Yes (Hospitalization)
  Sender: FDA-Public Use
  Company Number: None

PATIENT
  Sex: Female

DRUGS (24)
  1. SODIUM CHLORIDE. [Concomitant]
     Active Substance: SODIUM CHLORIDE
  2. FEXOFENADINE [Concomitant]
     Active Substance: FEXOFENADINE\FEXOFENADINE HYDROCHLORIDE
  3. CHOLECALCIFE [Concomitant]
  4. LANSOPRAZOLE. [Concomitant]
     Active Substance: LANSOPRAZOLE
  5. SALMETER [Concomitant]
  6. TOBRAMYCIN  300MG/5ML [Suspect]
     Active Substance: TOBRAMYCIN
     Indication: CYSTIC FIBROSIS
     Route: 055
     Dates: start: 20160405
  7. PULMOZYNE [Concomitant]
  8. CAYSTON [Concomitant]
     Active Substance: AZTREONAM
  9. ZITHROMAX [Concomitant]
     Active Substance: AZITHROMYCIN DIHYDRATE
  10. DIPHEN/ZINC [Concomitant]
  11. AZITHROMYCIN ANHYDROUS. [Concomitant]
     Active Substance: AZITHROMYCIN ANHYDROUS
  12. MOMETASONE [Concomitant]
     Active Substance: MOMETASONE
  13. FLUTICASONE. [Concomitant]
     Active Substance: FLUTICASONE
  14. CREON [Concomitant]
     Active Substance: PANCRELIPASE AMYLASE\PANCRELIPASE LIPASE\PANCRELIPASE PROTEASE
  15. AQUADEKS [Concomitant]
     Active Substance: MINERALS\VITAMINS
  16. ALBUTEROL. [Concomitant]
     Active Substance: ALBUTEROL
  17. TYLENOL [Concomitant]
     Active Substance: ACETAMINOPHEN
  18. PROAIR HFA [Concomitant]
     Active Substance: ALBUTEROL SULFATE
  19. MONTELUKAST [Concomitant]
     Active Substance: MONTELUKAST SODIUM
  20. CYPRPHETAD [Concomitant]
  21. TOBRAMYCIN. [Concomitant]
     Active Substance: TOBRAMYCIN
  22. PROVENTIL HFA [Concomitant]
     Active Substance: ALBUTEROL SULFATE
  23. POLYETH GLYC [Concomitant]
     Active Substance: POLYETHYLENE GLYCOLS
  24. A-HYDROCORT [Concomitant]
     Active Substance: HYDROCORTISONE SODIUM SUCCINATE

REACTIONS (1)
  - Sinus operation [None]
